FAERS Safety Report 11877965 (Version 1)
Quarter: 2015Q4

REPORT INFORMATION
  Report Type: Spontaneous
  Country: AU (occurrence: AU)
  Receive Date: 20151230
  Receipt Date: 20151230
  Transmission Date: 20160305
  Serious: Yes (Other)
  Sender: FDA-Public Use
  Company Number: AU-SUN PHARMACEUTICAL INDUSTRIES LTD-2015RR-108582

PATIENT

DRUGS (6)
  1. ATORVASTATIN [Interacting]
     Active Substance: ATORVASTATIN
     Indication: HYPERLIPIDAEMIA
     Dosage: 5 MG, DAILY, IN THE MORNING
     Route: 065
  2. ATORVASTATIN [Interacting]
     Active Substance: ATORVASTATIN
     Indication: HYPERLIPIDAEMIA
     Dosage: 10 MG, DAILY
     Route: 065
  3. CHOLECALCIFEROL/ VITAMIN D3 [Concomitant]
     Indication: VITAMIN D DEFICIENCY
     Dosage: 4000 IU, DAILY
     Route: 065
  4. QUETIAPINE [Suspect]
     Active Substance: QUETIAPINE
     Indication: HALLUCINATIONS, MIXED
     Dosage: 150 MG, AT NIGHT
     Route: 065
  5. VITAMIN D3 [Concomitant]
     Active Substance: CHOLECALCIFEROL
     Indication: VITAMIN D DEFICIENCY
     Dosage: 1000 IU, DAILY
     Route: 065
  6. FLUOXETINE [Interacting]
     Active Substance: FLUOXETINE HYDROCHLORIDE
     Indication: DEPRESSION
     Dosage: 20 MG, IN THE MORNING
     Route: 065

REACTIONS (4)
  - Weight increased [Recovering/Resolving]
  - Metabolic syndrome [Recovering/Resolving]
  - Myopathy toxic [Recovering/Resolving]
  - Drug interaction [Unknown]
